FAERS Safety Report 6097352-6 (Version None)
Quarter: 2009Q1

REPORT INFORMATION
  Report Type: 
  Country: None (occurrence: None)
  Receive Date: 20090226
  Receipt Date: 20090226
  Transmission Date: 20090719
  Serious: Yes (Hospitalization)
  Sender: FDA-Public Use
  Company Number: None

PATIENT
  Age: 40 Year
  Sex: Female
  Weight: 68.0396 kg

DRUGS (1)
  1. AVELOX [Suspect]
     Indication: PNEUMONIA
     Dosage: 400MG  1X DAILY PO
     Route: 048
     Dates: start: 20090103, end: 20090104

REACTIONS (22)
  - ANXIETY [None]
  - BLOOD PRESSURE INCREASED [None]
  - COMMUNICATION DISORDER [None]
  - DIZZINESS [None]
  - ERYTHEMA [None]
  - FALL [None]
  - FEAR OF DEATH [None]
  - FEELING ABNORMAL [None]
  - FLUSHING [None]
  - GAIT DISTURBANCE [None]
  - HEADACHE [None]
  - HEART RATE INCREASED [None]
  - HOT FLUSH [None]
  - MUSCLE SPASMS [None]
  - MUSCULOSKELETAL STIFFNESS [None]
  - PARAESTHESIA [None]
  - RESPIRATORY RATE INCREASED [None]
  - SKIN DISCOLOURATION [None]
  - SPEECH DISORDER [None]
  - SUICIDAL IDEATION [None]
  - THINKING ABNORMAL [None]
  - TREMOR [None]
